FAERS Safety Report 26040356 (Version 1)
Quarter: 2025Q4

REPORT INFORMATION
  Report Type: Report from Study
  Country: CA (occurrence: CA)
  Receive Date: 20251113
  Receipt Date: 20251113
  Transmission Date: 20260119
  Serious: Yes (Hospitalization)
  Sender: ALEXION PHARMACEUTICALS
  Company Number: CA-AstraZeneca-CH-00988744A

PATIENT
  Age: 59 Year
  Sex: Male

DRUGS (2)
  1. DURVALUMAB [Suspect]
     Active Substance: DURVALUMAB
     Indication: Bladder transitional cell carcinoma
     Dosage: 1500 MILLIGRAM, Q3W
     Dates: start: 20251001
  2. XARELTO [Concomitant]
     Active Substance: RIVAROXABAN

REACTIONS (3)
  - Blood disorder [Unknown]
  - Blood potassium decreased [Unknown]
  - Constipation [Unknown]

NARRATIVE: CASE EVENT DATE: 20251104
